FAERS Safety Report 14023480 (Version 4)
Quarter: 2017Q4

REPORT INFORMATION
  Report Type: Spontaneous
  Country: US (occurrence: US)
  Receive Date: 20170929
  Receipt Date: 20171013
  Transmission Date: 20180321
  Serious: No
  Sender: FDA-Public Use
  Company Number: US-MITSUBISHI TANABE PHARMA CORPORATION-MPE2017-0020460

PATIENT
  Age: 70 Year
  Sex: Male
  Weight: 77.18 kg

DRUGS (21)
  1. SALINE NASAL SPRAY [Concomitant]
     Active Substance: SODIUM CHLORIDE
     Route: 065
  2. BUPIVACAINE. [Concomitant]
     Active Substance: BUPIVACAINE
     Indication: ANAESTHESIA
     Route: 058
     Dates: start: 20170920
  3. KETAMINE [Concomitant]
     Active Substance: KETAMINE
     Indication: ANAESTHESIA
     Route: 042
     Dates: start: 20170920
  4. CARDIOVID PLUS [Concomitant]
     Route: 065
  5. LIDOCAINE. [Concomitant]
     Active Substance: LIDOCAINE
     Indication: ANAESTHESIA
     Route: 058
     Dates: start: 20170920
  6. METOPROLOL. [Concomitant]
     Active Substance: METOPROLOL
     Route: 065
  7. LACTATED RINGERS SOLUTION [Concomitant]
     Active Substance: CALCIUM CHLORIDE\POTASSIUM CHLORIDE\SODIUM CHLORIDE\SODIUM LACTATE
     Indication: ANAESTHESIA
     Route: 042
     Dates: start: 20170920
  8. CALCIUM LACTATE [Concomitant]
     Active Substance: CALCIUM LACTATE
     Dosage: 10-15 TABLETS DAILY
     Route: 048
  9. RADICAVA [Suspect]
     Active Substance: EDARAVONE
     Indication: AMYOTROPHIC LATERAL SCLEROSIS
     Route: 041
     Dates: start: 20170920, end: 20171003
  10. ASPIRIN. [Concomitant]
     Active Substance: ASPIRIN
     Route: 065
  11. LISINOPRIL. [Concomitant]
     Active Substance: LISINOPRIL
     Route: 065
  12. NITRO [Concomitant]
     Active Substance: NITROGLYCERIN
     Route: 065
  13. CLINDAMYCIN. [Concomitant]
     Active Substance: CLINDAMYCIN
     Indication: ANAESTHESIA
     Route: 042
     Dates: start: 20170920
  14. HYDROCHLOROTHIAZID [Concomitant]
     Active Substance: HYDROCHLOROTHIAZIDE
     Route: 065
  15. RILUTEK [Concomitant]
     Active Substance: RILUZOLE
     Route: 065
  16. VERSED [Concomitant]
     Active Substance: MIDAZOLAM HYDROCHLORIDE
     Indication: ANAESTHESIA
     Route: 042
     Dates: start: 20170920
  17. AMLODIPINE [Concomitant]
     Active Substance: AMLODIPINE BESYLATE
     Route: 065
  18. PLAVIX [Concomitant]
     Active Substance: CLOPIDOGREL BISULFATE
     Route: 065
  19. FISH OIL [Concomitant]
     Active Substance: FISH OIL
     Route: 065
  20. FLOMAX [Concomitant]
     Active Substance: TAMSULOSIN HYDROCHLORIDE
     Route: 065
  21. FENTANYL. [Concomitant]
     Active Substance: FENTANYL
     Indication: ANAESTHESIA
     Route: 042
     Dates: start: 20170920

REACTIONS (4)
  - Fatigue [Not Recovered/Not Resolved]
  - Dysgeusia [Recovered/Resolved]
  - Muscular weakness [Not Recovered/Not Resolved]
  - Constipation [Recovered/Resolved]

NARRATIVE: CASE EVENT DATE: 20170920
